FAERS Safety Report 8179359-8 (Version None)
Quarter: 2012Q1

REPORT INFORMATION
  Report Type: 
  Country: None (occurrence: None)
  Receive Date: 20120302
  Receipt Date: 20120221
  Transmission Date: 20120608
  Serious: Yes (Other)
  Sender: FDA-Public Use
  Company Number: DE-JNJFOC-20120108179

PATIENT
  Sex: Male

DRUGS (4)
  1. DEXAMETHASONE [Concomitant]
     Route: 048
     Dates: start: 20111201
  2. RISPERDAL [Suspect]
     Indication: POOR QUALITY SLEEP
     Route: 048
  3. RISPERDAL [Suspect]
     Route: 048
     Dates: start: 20120118
  4. PHENYTOIN [Concomitant]
     Route: 048
     Dates: start: 19920101

REACTIONS (1)
  - HANGOVER [None]
